FAERS Safety Report 15185828 (Version 1)
Quarter: 2018Q3

REPORT INFORMATION
  Report Type: Report from Study
  Country: US (occurrence: US)
  Receive Date: 20180723
  Receipt Date: 20180723
  Transmission Date: 20181010
  Serious: Yes (Other)
  Sender: FDA-Public Use
  Company Number: US-TESARO, INC-US-2018TSO03186

PATIENT

DRUGS (1)
  1. ZEJULA [Suspect]
     Active Substance: NIRAPARIB
     Indication: OVARIAN CANCER
     Dosage: 300 MG, UNK
     Route: 048
     Dates: start: 20180614, end: 20180710

REACTIONS (8)
  - Subdural haematoma [Not Recovered/Not Resolved]
  - Head injury [Not Recovered/Not Resolved]
  - Fracture [Not Recovered/Not Resolved]
  - Fall [Not Recovered/Not Resolved]
  - Night sweats [Recovering/Resolving]
  - Haemorrhage [Not Recovered/Not Resolved]
  - Platelet count decreased [Not Recovered/Not Resolved]
  - Drug dose omission [Recovered/Resolved]
